FAERS Safety Report 6684574-6 (Version None)
Quarter: 2010Q2

REPORT INFORMATION
  Report Type: 
  Country: None (occurrence: None)
  Receive Date: 20100416
  Receipt Date: 20100406
  Transmission Date: 20101027
  Serious: Yes (Hospitalization)
  Sender: FDA-Public Use
  Company Number: US-ROCHE-696729

PATIENT
  Weight: 2.1 kg

DRUGS (1)
  1. OSELTAMIVIR PHOSPHATE [Suspect]
     Route: 064
     Dates: start: 20091101

REACTIONS (3)
  - LIVE BIRTH [None]
  - SEPSIS [None]
  - SMALL FOR DATES BABY [None]
